FAERS Safety Report 6819728-9 (Version None)
Quarter: 2010Q3

REPORT INFORMATION
  Report Type: 
  Country: None (occurrence: None)
  Receive Date: 20100707
  Receipt Date: 20100611
  Transmission Date: 20110219
  Serious: Yes (Other)
  Sender: FDA-Public Use
  Company Number: ES-BIOGENIDEC-2010BI018567

PATIENT
  Age: 34 Year
  Sex: Female

DRUGS (4)
  1. TYSABRI [Suspect]
     Indication: MULTIPLE SCLEROSIS
     Route: 042
     Dates: start: 20080205, end: 20080804
  2. TYSABRI [Suspect]
     Route: 042
  3. MUSCLE RELAXANTS (NOS) [Concomitant]
     Dates: start: 20090318, end: 20090914
  4. BACLOFEN [Concomitant]
     Indication: MUSCLE SPASTICITY

REACTIONS (2)
  - ABORTION SPONTANEOUS [None]
  - PREGNANCY [None]
